FAERS Safety Report 18762289 (Version 1)
Quarter: 2021Q1

REPORT INFORMATION
  Report Type: Spontaneous
  Country: ES (occurrence: ES)
  Receive Date: 20210120
  Receipt Date: 20210120
  Transmission Date: 20210419
  Serious: Yes (Death, Hospitalization)
  Sender: FDA-Public Use
  Company Number: ES-TEVA-2021-ES-1869605

PATIENT
  Age: 11 Year
  Sex: Female

DRUGS (12)
  1. TOFACITINIB [Suspect]
     Active Substance: TOFACITINIB
     Indication: INTERSTITIAL LUNG DISEASE
     Dosage: 10 MILLIGRAM DAILY;
     Route: 065
     Dates: start: 2020
  2. REMDESIVIR. [Suspect]
     Active Substance: REMDESIVIR
     Indication: COVID-19
     Dosage: 200 MILLIGRAM DAILY;
     Route: 065
     Dates: start: 2020
  3. CYCLOPHOSPHAMIDE. [Suspect]
     Active Substance: CYCLOPHOSPHAMIDE
     Indication: INTERSTITIAL LUNG DISEASE
     Route: 042
     Dates: start: 2020
  4. TACROLIMUS. [Suspect]
     Active Substance: TACROLIMUS
     Dosage: .2 MG/KG DAILY;
     Route: 065
     Dates: start: 2020
  5. PREDNISONE. [Suspect]
     Active Substance: PREDNISONE
     Indication: IMMUNOSUPPRESSANT DRUG THERAPY
     Dosage: 1 MG/KG DAILY;
     Route: 048
     Dates: start: 2020
  6. IMMUNOGLOBULIN [IMMUNOGLOBULIN] IV [Suspect]
     Active Substance: HUMAN IMMUNOGLOBULIN G
     Indication: INTERSTITIAL LUNG DISEASE
     Dosage: 2G/KG
     Route: 042
     Dates: start: 2020
  7. TACROLIMUS. [Suspect]
     Active Substance: TACROLIMUS
     Indication: IMMUNOSUPPRESSANT DRUG THERAPY
     Route: 065
     Dates: start: 2020, end: 2020
  8. METHYLPREDNISOLONE. [Suspect]
     Active Substance: METHYLPREDNISOLONE
     Indication: INTERSTITIAL LUNG DISEASE
     Dosage: 30 MG/KG DAILY; PULSE THERAPY
     Route: 065
     Dates: start: 2020
  9. TOCILIZUMAB. [Suspect]
     Active Substance: TOCILIZUMAB
     Indication: COVID-19
     Dosage: A SINGLE DOSE WAS GIVEN
     Route: 065
     Dates: start: 2020
  10. HYDROXYCHLOROQUINE [Suspect]
     Active Substance: HYDROXYCHLOROQUINE
     Indication: COVID-19
     Dosage: 400 MILLIGRAM DAILY;
     Route: 065
     Dates: start: 2020
  11. METHYLPREDNISOLONE. [Suspect]
     Active Substance: METHYLPREDNISOLONE
     Dosage: 2 MG/KG DAILY;
     Route: 065
     Dates: start: 2020
  12. MYCOPHENOLATE MOFETIL. [Suspect]
     Active Substance: MYCOPHENOLATE MOFETIL
     Indication: IMMUNOSUPPRESSANT DRUG THERAPY
     Route: 065
     Dates: start: 2020, end: 2020

REACTIONS (8)
  - COVID-19 [Fatal]
  - Enterococcal infection [Fatal]
  - Septic shock [Fatal]
  - Acute kidney injury [Fatal]
  - Haemophagocytic lymphohistiocytosis [Unknown]
  - Off label use [Unknown]
  - Multiple organ dysfunction syndrome [Fatal]
  - Drug ineffective [Unknown]

NARRATIVE: CASE EVENT DATE: 2020
